FAERS Safety Report 20890719 (Version 1)
Quarter: 2022Q2

REPORT INFORMATION
  Report Type: Spontaneous
  Country: US (occurrence: US)
  Receive Date: 20220530
  Receipt Date: 20220530
  Transmission Date: 20220721
  Serious: No
  Sender: FDA-Public Use
  Company Number: US-CELGENE-USA-20220302476

PATIENT
  Age: 76 Year
  Sex: Male

DRUGS (4)
  1. REVLIMID [Suspect]
     Active Substance: LENALIDOMIDE
     Indication: Non-Hodgkin^s lymphoma
     Dosage: 10 MILLIGRAM
     Route: 048
     Dates: start: 202110
  2. REVLIMID [Suspect]
     Active Substance: LENALIDOMIDE
     Dosage: 5 MILLIGRAM
     Route: 048
     Dates: start: 202112
  3. REVLIMID [Suspect]
     Active Substance: LENALIDOMIDE
     Dosage: FORM STRENGTH : 2.5 ?2.5 MILLIGRAM
     Route: 048
     Dates: start: 202201
  4. REVLIMID [Suspect]
     Active Substance: LENALIDOMIDE
     Dosage: FREQUENCY : TAKE 1 CAPSULE BY MOUTH EVERY DAY FOR 14 DAYS ON THEN 14 DAYS OFF
     Route: 048
     Dates: start: 20211012

REACTIONS (4)
  - Cough [Not Recovered/Not Resolved]
  - White blood cell count decreased [Recovered/Resolved]
  - Constipation [Not Recovered/Not Resolved]
  - Product distribution issue [Unknown]
